FAERS Safety Report 6544468-3 (Version None)
Quarter: 2010Q1

REPORT INFORMATION
  Report Type: 
  Country: None (occurrence: None)
  Receive Date: 20100121
  Receipt Date: 20100114
  Transmission Date: 20100710
  Serious: Yes (Hospitalization)
  Sender: FDA-Public Use
  Company Number: JP-ROCHE-646979

PATIENT
  Sex: Male
  Weight: 52 kg

DRUGS (22)
  1. TOCILIZUMAB [Suspect]
     Indication: RHEUMATOID ARTHRITIS
     Route: 041
     Dates: start: 20080625, end: 20080625
  2. TOCILIZUMAB [Suspect]
     Route: 041
     Dates: start: 20080723, end: 20080723
  3. TOCILIZUMAB [Suspect]
     Route: 041
     Dates: start: 20080820, end: 20080820
  4. TOCILIZUMAB [Suspect]
     Route: 041
     Dates: start: 20080917, end: 20080917
  5. TOCILIZUMAB [Suspect]
     Route: 041
     Dates: start: 20081015, end: 20081015
  6. TOCILIZUMAB [Suspect]
     Route: 041
     Dates: start: 20081112, end: 20081112
  7. TOCILIZUMAB [Suspect]
     Route: 041
     Dates: start: 20081210
  8. TOCILIZUMAB [Suspect]
     Route: 041
     Dates: start: 20090617, end: 20090617
  9. METOLATE [Concomitant]
     Route: 048
     Dates: end: 20080819
  10. METOLATE [Concomitant]
     Route: 048
     Dates: start: 20080820, end: 20080916
  11. METOLATE [Concomitant]
     Route: 048
     Dates: start: 20080917, end: 20081014
  12. METOLATE [Concomitant]
     Route: 048
     Dates: start: 20081015
  13. OMEPRAL [Concomitant]
     Dosage: DOSAGE FORM:ENTERIC
     Route: 048
  14. ALENDRONATE SODIUM [Concomitant]
     Route: 048
  15. NABOAL [Concomitant]
     Route: 048
  16. FOLIAMIN [Concomitant]
     Route: 048
  17. ALLELOCK [Concomitant]
     Route: 048
     Dates: end: 20090701
  18. RABEPRAZOLE SODIUM [Concomitant]
     Route: 048
     Dates: start: 20090513
  19. GLYCYRON [Concomitant]
     Route: 048
     Dates: end: 20090701
  20. POLARAMINE [Concomitant]
     Route: 048
     Dates: end: 20090701
  21. ALOSITOL [Concomitant]
     Route: 048
  22. CLINORIL [Concomitant]
     Route: 048
     Dates: start: 20070228

REACTIONS (1)
  - EOSINOPHILIC PNEUMONIA [None]
